FAERS Safety Report 17043890 (Version 1)
Quarter: 2019Q4

REPORT INFORMATION
  Report Type: Spontaneous
  Country: JP (occurrence: JP)
  Receive Date: 20191118
  Receipt Date: 20191118
  Transmission Date: 20200122
  Serious: Yes (Death, Hospitalization, Other)
  Sender: FDA-Public Use
  Company Number: JP-JNJFOC-20191017932

PATIENT
  Age: 41 Year
  Sex: Female
  Weight: 63.3 kg

DRUGS (2)
  1. FENTANYL CITRATE. [Concomitant]
     Active Substance: FENTANYL CITRATE
     Indication: PAIN
     Route: 062
     Dates: start: 20181129, end: 20190621
  2. TRABECTEDIN [Suspect]
     Active Substance: TRABECTEDIN
     Indication: LEIOMYOSARCOMA METASTATIC
     Dosage: 24-HOUR INFUSION
     Route: 041
     Dates: start: 20190401, end: 20190610

REACTIONS (3)
  - Rhabdomyolysis [Not Recovered/Not Resolved]
  - Radiation oesophagitis [Not Recovered/Not Resolved]
  - Leiomyosarcoma [Fatal]

NARRATIVE: CASE EVENT DATE: 20190418
